FAERS Safety Report 8822512 (Version 4)
Quarter: 2012Q4

REPORT INFORMATION
  Report Type: 
  Country: JP (occurrence: JP)
  Receive Date: 20121003
  Receipt Date: 20121115
  Transmission Date: 20130627
  Serious: Yes (Death, Life-Threatening, Other)
  Sender: FDA-Public Use
  Company Number: JP-ABBOTT-12P-087-0963661-00

PATIENT
  Age: 40 Year
  Sex: Male
  Weight: 45 kg

DRUGS (7)
  1. HUMIRA [Suspect]
     Indication: CROHN^S DISEASE
     Route: 058
     Dates: start: 20120404, end: 20120404
  2. HUMIRA [Suspect]
     Dates: start: 20120418, end: 20120418
  3. HUMIRA [Suspect]
     Dates: start: 20120502, end: 20120530
  4. REMICADE [Suspect]
     Indication: PRODUCT USED FOR UNKNOWN INDICATION
     Route: 041
     Dates: start: 20031127, end: 20120222
  5. MESALAZINE [Concomitant]
     Indication: CROHN^S DISEASE
     Route: 048
     Dates: start: 20031021
  6. FAMOTIDINE [Concomitant]
     Indication: GASTRITIS
     Route: 048
     Dates: start: 20031021, end: 20120530
  7. FAMOTIDINE [Concomitant]

REACTIONS (4)
  - Anal cancer stage IV [Fatal]
  - General physical health deterioration [Unknown]
  - Drug ineffective [Unknown]
  - Pain [Unknown]
